FAERS Safety Report 16647237 (Version 1)
Quarter: 2019Q3

REPORT INFORMATION
  Report Type: Spontaneous
  Country: US (occurrence: US)
  Receive Date: 20190730
  Receipt Date: 20190730
  Transmission Date: 20191004
  Serious: No
  Sender: FDA-Public Use
  Company Number: US-SUNOVION-2016SUN002875

PATIENT
  Sex: Male

DRUGS (3)
  1. ESZOPICLONE. [Suspect]
     Active Substance: ESZOPICLONE
     Indication: SLEEP DISORDER
     Dosage: UNK
     Route: 048
  2. LUNESTA [Suspect]
     Active Substance: ESZOPICLONE
     Dosage: UNK
     Route: 048
     Dates: start: 1999
  3. AMBIEN [Suspect]
     Active Substance: ZOLPIDEM TARTRATE

REACTIONS (3)
  - Drug ineffective [Unknown]
  - Sleep disorder [Unknown]
  - Confusional state [Unknown]
